FAERS Safety Report 7153487-8 (Version None)
Quarter: 2010Q4

REPORT INFORMATION
  Report Type: 
  Country: None (occurrence: None)
  Receive Date: 20101213
  Receipt Date: 20101206
  Transmission Date: 20110411
  Serious: Yes (Hospitalization)
  Sender: FDA-Public Use
  Company Number: B0663194A

PATIENT
  Sex: Female

DRUGS (8)
  1. ARIXTRA [Suspect]
     Indication: THROMBOSIS PROPHYLAXIS
     Dosage: 2.5MG PER DAY
     Route: 058
     Dates: start: 20100524, end: 20100601
  2. LOXONIN [Suspect]
     Indication: ANALGESIC THERAPY
     Dosage: 180MG PER DAY
     Route: 048
     Dates: start: 20100522, end: 20100601
  3. ASPIRIN [Suspect]
     Indication: ANGINA PECTORIS
     Dosage: 100MG PER DAY
     Route: 048
     Dates: start: 20100525, end: 20100601
  4. PERSANTIN [Suspect]
     Indication: ANGINA PECTORIS
     Dosage: 75MG PER DAY
     Route: 048
     Dates: start: 20100525, end: 20100601
  5. LIPITOR [Concomitant]
     Dosage: 5MG PER DAY
     Route: 048
     Dates: start: 20100522, end: 20100602
  6. ADETPHOS [Concomitant]
     Dosage: 190MG PER DAY
     Route: 048
     Dates: start: 20100522, end: 20100602
  7. HERBESSER [Concomitant]
     Dosage: 90MG PER DAY
     Route: 048
     Dates: start: 20100522
  8. MUCOSTA [Concomitant]
     Dosage: 300MG PER DAY
     Route: 048
     Dates: start: 20100522, end: 20100601

REACTIONS (5)
  - ABDOMINAL DISCOMFORT [None]
  - ANAEMIA [None]
  - COLD SWEAT [None]
  - DIZZINESS POSTURAL [None]
  - DUODENAL ULCER [None]
